FAERS Safety Report 21865700 (Version 2)
Quarter: 2023Q1

REPORT INFORMATION
  Report Type: Spontaneous
  Country: US (occurrence: US)
  Receive Date: 20230116
  Receipt Date: 20230127
  Transmission Date: 20230418
  Serious: No
  Sender: FDA-Public Use
  Company Number: US-SA-SAC20230106000880

PATIENT
  Age: 50 Year
  Sex: Female
  Weight: 115 kg

DRUGS (2)
  1. DUPIXENT [Suspect]
     Active Substance: DUPILUMAB
     Indication: Dermatitis atopic
     Dosage: 300 MG, QOW
     Route: 058
  2. SINGULAIR [Concomitant]
     Active Substance: MONTELUKAST SODIUM

REACTIONS (4)
  - Dyspnoea [Not Recovered/Not Resolved]
  - Pruritus [Not Recovered/Not Resolved]
  - Product dose omission issue [Unknown]
  - Dermatitis atopic [Unknown]

NARRATIVE: CASE EVENT DATE: 20230101
